FAERS Safety Report 10572592 (Version 2)
Quarter: 2016Q2

REPORT INFORMATION
  Report Type: Spontaneous
  Country: SE (occurrence: SE)
  Receive Date: 20141110
  Receipt Date: 20160617
  Transmission Date: 20160815
  Serious: Yes (Other)
  Sender: FDA-Public Use
  Company Number: SE-ROCHE-1486226

PATIENT
  Age: 50 Year
  Sex: Female

DRUGS (10)
  1. FOLACIN [Concomitant]
     Active Substance: FOLIC ACID
     Route: 048
  2. NASONEX [Concomitant]
     Active Substance: MOMETASONE FUROATE
     Route: 065
  3. PREDNISOLONE. [Concomitant]
     Active Substance: PREDNISOLONE
     Route: 065
  4. ROACTEMRA [Suspect]
     Active Substance: TOCILIZUMAB
     Indication: RHEUMATOID ARTHRITIS
     Route: 058
     Dates: start: 20140901, end: 201410
  5. METOJECT [Concomitant]
     Active Substance: METHOTREXATE SODIUM
     Dosage: STRENGTH: 50 MG/ML
     Route: 065
  6. ALVEDON [Concomitant]
     Active Substance: ACETAMINOPHEN
     Route: 065
  7. SYMBICORT [Concomitant]
     Active Substance: BUDESONIDE\FORMOTEROL FUMARATE DIHYDRATE
     Route: 065
  8. DENTAN [Concomitant]
     Active Substance: SODIUM FLUORIDE
     Route: 065
  9. OMEPRAZOLE. [Concomitant]
     Active Substance: OMEPRAZOLE
     Route: 065
  10. ARCOXIA [Concomitant]
     Active Substance: ETORICOXIB
     Route: 065

REACTIONS (2)
  - Alanine aminotransferase increased [Unknown]
  - Oral mucosal blistering [Unknown]
